FAERS Safety Report 8446950-0 (Version None)
Quarter: 2012Q2

REPORT INFORMATION
  Report Type: 
  Country: None (occurrence: None)
  Receive Date: 20120613
  Receipt Date: 20120613
  Transmission Date: 20120825
  Serious: No
  Sender: FDA-Public Use
  Company Number: None

PATIENT
  Age: 48 Year
  Sex: Female
  Weight: 64.8644 kg

DRUGS (1)
  1. CIPRO [Suspect]
     Indication: URINARY TRACT INFECTION
     Dosage: 500 MG, BID, PO
     Route: 048
     Dates: start: 20120611, end: 20120611

REACTIONS (5)
  - MUSCULAR WEAKNESS [None]
  - PARAESTHESIA [None]
  - BACK PAIN [None]
  - IMPAIRED WORK ABILITY [None]
  - DIZZINESS [None]
